FAERS Safety Report 7408609-8 (Version None)
Quarter: 2011Q2

REPORT INFORMATION
  Report Type: 
  Country: None (occurrence: None)
  Receive Date: 20110412
  Receipt Date: 20110329
  Transmission Date: 20111010
  Serious: Yes (Hospitalization, Other)
  Sender: FDA-Public Use
  Company Number: PHHY2011BR26795

PATIENT
  Sex: Male

DRUGS (5)
  1. DIOVAN [Suspect]
     Indication: HYPERTENSION
     Dosage: 1 DF, 160MG 01 TABLET DAILY
     Route: 048
  2. RENAGEL [Concomitant]
     Dosage: 800 MG, TID
     Route: 048
  3. DIOVAN [Suspect]
     Dosage: 1 DF, 80MG 01 TABLET DAILY
     Route: 048
  4. OMEPRAZOLE [Concomitant]
     Dosage: 20 MG, ONE TABLET IN MORNING AND ONE IN NIGHT
     Route: 048
  5. EPOGEN [Concomitant]
     Dosage: 2000 IU, 03 TIMES A WEEK
     Dates: start: 20081105

REACTIONS (11)
  - HYPOTENSION [None]
  - BLOOD UREA INCREASED [None]
  - BLOOD PRESSURE FLUCTUATION [None]
  - FALL [None]
  - RENAL FAILURE CHRONIC [None]
  - GASTROOESOPHAGEAL REFLUX DISEASE [None]
  - BLOOD CREATININE INCREASED [None]
  - BLOOD PRESSURE INADEQUATELY CONTROLLED [None]
  - VOCAL CORD DISORDER [None]
  - BLOOD POTASSIUM INCREASED [None]
  - HYPERTENSION [None]
